FAERS Safety Report 9746983 (Version 1)
Quarter: 2013Q4

REPORT INFORMATION
  Report Type: Spontaneous
  Country: IT (occurrence: IT)
  Receive Date: 20131211
  Receipt Date: 20131211
  Transmission Date: 20140711
  Serious: Yes (Other)
  Sender: FDA-Public Use
  Company Number: IT-MYLANLABS-2013S1027174

PATIENT
  Sex: Female

DRUGS (2)
  1. HALOPERIDOL [Suspect]
     Indication: SCHIZOPHRENIA, DISORGANISED TYPE
     Dosage: 10MG X3 FOR A COUPLE OF MTHS; THEN DOSAGE FURTHER INCREASED
     Route: 048
  2. HALOPERIDOL [Suspect]
     Indication: SCHIZOPHRENIA, DISORGANISED TYPE
     Dosage: EVERY 28 DAYS
     Route: 030

REACTIONS (3)
  - Hypothermia [Unknown]
  - Malaise [Unknown]
  - Mood swings [Unknown]
